FAERS Safety Report 10196722 (Version 1)
Quarter: 2014Q2

REPORT INFORMATION
  Report Type: Spontaneous
  Country: GB (occurrence: GB)
  Receive Date: 20140527
  Receipt Date: 20140527
  Transmission Date: 20141212
  Serious: Yes (Hospitalization, Other)
  Sender: FDA-Public Use
  Company Number: GB-BAYER-2014-075062

PATIENT
  Age: 30 Year
  Sex: Female
  Weight: 55 kg

DRUGS (2)
  1. CIPROFLOXACIN [Suspect]
  2. CLARITHROMYCIN [Interacting]
     Indication: EAR INFECTION
     Dosage: 500 MG, UNK
     Route: 048

REACTIONS (5)
  - Anxiety [Recovered/Resolved]
  - Dyspnoea [Recovered/Resolved]
  - Drug interaction [Unknown]
  - Stoma site pain [Recovering/Resolving]
  - Tinnitus [Not Recovered/Not Resolved]
